FAERS Safety Report 8369798-4 (Version None)
Quarter: 2012Q2

REPORT INFORMATION
  Report Type: 
  Country: None (occurrence: None)
  Receive Date: 20120518
  Receipt Date: 20120511
  Transmission Date: 20120825
  Serious: Yes (Other)
  Sender: FDA-Public Use
  Company Number: PHHY2012JP041436

PATIENT
  Age: 81 Year
  Sex: Female

DRUGS (3)
  1. TEGRETOL [Suspect]
     Indication: EPILEPSY
     Dosage: 600 MG, DAILY
     Route: 048
  2. WARFARIN POTASSIUM [Concomitant]
     Dosage: UNK UKN, UNK
     Route: 048
  3. ALDACTONE [Concomitant]
     Dosage: UNK UKN, UNK
     Route: 048

REACTIONS (4)
  - PNEUMONIA ASPIRATION [None]
  - TOXICITY TO VARIOUS AGENTS [None]
  - GENERAL PHYSICAL CONDITION ABNORMAL [None]
  - DEPRESSED LEVEL OF CONSCIOUSNESS [None]
